FAERS Safety Report 7952426-7 (Version None)
Quarter: 2011Q4

REPORT INFORMATION
  Report Type: 
  Country: None (occurrence: None)
  Receive Date: 20111201
  Receipt Date: 20111125
  Transmission Date: 20120403
  Serious: Yes (Hospitalization)
  Sender: FDA-Public Use
  Company Number: JP-GLAXOSMITHKLINE-B0623853A

PATIENT
  Sex: Female
  Weight: 41 kg

DRUGS (13)
  1. TYKERB [Suspect]
     Dosage: 1250MG PER DAY
     Route: 048
     Dates: start: 20100219
  2. AMOBAN [Concomitant]
     Indication: INSOMNIA
     Route: 048
     Dates: start: 20091218
  3. FERROUS CITRATE [Concomitant]
     Indication: ANAEMIA
     Route: 048
     Dates: start: 20091218, end: 20100103
  4. ZOMETA [Concomitant]
     Indication: METASTASES TO BONE
     Route: 042
     Dates: start: 20101224
  5. XELODA [Suspect]
     Indication: BREAST CANCER
     Dosage: 4800MG PER DAY
     Route: 048
     Dates: start: 20091218, end: 20100104
  6. PYDOXAL [Concomitant]
     Indication: PALMAR-PLANTAR ERYTHRODYSAESTHESIA SYNDROME
     Route: 048
     Dates: start: 20091218, end: 20100202
  7. MYSER [Concomitant]
     Indication: PALMAR-PLANTAR ERYTHRODYSAESTHESIA SYNDROME
     Route: 061
     Dates: start: 20091218, end: 20100228
  8. HIRUDOID [Concomitant]
     Indication: PALMAR-PLANTAR ERYTHRODYSAESTHESIA SYNDROME
     Route: 061
     Dates: start: 20091218, end: 20100228
  9. TYKERB [Suspect]
     Indication: BREAST CANCER
     Dosage: 1250MG PER DAY
     Route: 048
     Dates: start: 20091218, end: 20100104
  10. MUCODYNE [Concomitant]
     Indication: BRONCHITIS CHRONIC
     Route: 048
     Dates: start: 20091218
  11. ALLEGRA [Concomitant]
     Indication: RHINITIS
     Route: 048
     Dates: start: 20091218
  12. MOTILIUM [Concomitant]
     Indication: NAUSEA
     Route: 048
     Dates: start: 20091218
  13. FAMOTIDINE [Concomitant]
     Indication: NAUSEA
     Route: 048
     Dates: start: 20091218

REACTIONS (3)
  - PANCYTOPENIA [None]
  - MALAISE [None]
  - DIARRHOEA [None]
